FAERS Safety Report 16455774 (Version 1)
Quarter: 2019Q2

REPORT INFORMATION
  Report Type: Spontaneous
  Country: BG (occurrence: BG)
  Receive Date: 20190620
  Receipt Date: 20190620
  Transmission Date: 20190711
  Serious: Yes (Death)
  Sender: FDA-Public Use
  Company Number: BG-ROCHE-2338592

PATIENT
  Age: 86 Year
  Sex: Male

DRUGS (14)
  1. SOMAZINA [CITICOLINE] [Concomitant]
     Route: 065
  2. ATROPINE. [Concomitant]
     Active Substance: ATROPINE
     Route: 065
  3. ACTILYSE [Suspect]
     Active Substance: ALTEPLASE
     Indication: CEREBRAL INFARCTION
  4. SODIUM CHLORIDE. [Concomitant]
     Active Substance: SODIUM CHLORIDE
     Route: 065
  5. MEDAXONE [Concomitant]
     Route: 065
  6. QUAMATEL [Concomitant]
     Active Substance: FAMOTIDINE
     Route: 065
  7. ADRENALINE [EPINEPHRINE] [Concomitant]
     Active Substance: EPINEPHRINE
     Route: 065
  8. ACTILYSE [Suspect]
     Active Substance: ALTEPLASE
     Indication: CEREBRAL ARTERY EMBOLISM
     Route: 065
     Dates: start: 20181004, end: 20181004
  9. VICETIN [Concomitant]
     Route: 065
  10. CHLOPHAZOLIN [Concomitant]
     Active Substance: CLONIDINE HYDROCHLORIDE
     Route: 065
  11. INSULIN [Concomitant]
     Active Substance: INSULIN NOS
     Route: 065
  12. PARACETAMOL [Concomitant]
     Active Substance: ACETAMINOPHEN
     Route: 065
  13. MANNITOL. [Concomitant]
     Active Substance: MANNITOL
     Route: 065
  14. VITAMIN C [Concomitant]
     Active Substance: ASCORBIC ACID

REACTIONS (3)
  - Haemorrhagic infarction [Fatal]
  - Brain herniation [Fatal]
  - Brain oedema [Fatal]
